FAERS Safety Report 12419196 (Version 2)
Quarter: 2016Q4

REPORT INFORMATION
  Report Type: Spontaneous
  Country: GB (occurrence: GB)
  Receive Date: 20160531
  Receipt Date: 20161107
  Transmission Date: 20170207
  Serious: Yes (Life-Threatening, Hospitalization, Disabling, Other)
  Sender: FDA-Public Use
  Company Number: GB-DRREDDYS-GER/UKI/16/0079974

PATIENT
  Age: 36 Year
  Sex: Female

DRUGS (3)
  1. FLUOXETINE [Suspect]
     Active Substance: FLUOXETINE HYDROCHLORIDE
     Indication: DEPRESSION
     Route: 048
     Dates: start: 20160428, end: 20160501
  2. LOGYNON [Concomitant]
     Indication: PRODUCT USED FOR UNKNOWN INDICATION
  3. LANSOPRAZOLE. [Concomitant]
     Active Substance: LANSOPRAZOLE
     Indication: PRODUCT USED FOR UNKNOWN INDICATION

REACTIONS (8)
  - Liver injury [Not Recovered/Not Resolved]
  - Jaundice [Recovered/Resolved]
  - Influenza like illness [Recovered/Resolved]
  - Blood glucose decreased [Unknown]
  - Drug-induced liver injury [Recovered/Resolved with Sequelae]
  - Hepatitis E [Unknown]
  - Autoimmune hepatitis [Unknown]
  - Prothrombin time prolonged [Unknown]
